FAERS Safety Report 5327436-9 (Version None)
Quarter: 2007Q2

REPORT INFORMATION
  Report Type: 
  Country: None (occurrence: None)
  Receive Date: 20070517
  Receipt Date: 20070508
  Transmission Date: 20071010
  Serious: Yes (Hospitalization)
  Sender: FDA-Public Use
  Company Number: US-KINGPHARMUSA00001-K200700564

PATIENT

DRUGS (1)
  1. ALTACE [Suspect]
     Dosage: 5 MG, BID
     Route: 048

REACTIONS (2)
  - FALL [None]
  - VERTIGO [None]
